FAERS Safety Report 9494646 (Version 1)
Quarter: 2013Q3

REPORT INFORMATION
  Report Type: Spontaneous
  Country: DE (occurrence: DE)
  Receive Date: 20130903
  Receipt Date: 20130903
  Transmission Date: 20140515
  Serious: Yes (Death)
  Sender: FDA-Public Use
  Company Number: DE-ELI_LILLY_AND_COMPANY-DE201308006881

PATIENT
  Age: 91 Year
  Sex: Male

DRUGS (12)
  1. ZYPREXA [Suspect]
     Dosage: 5 MG, UNKNOWN
     Route: 048
     Dates: start: 20000829
  2. TRUXAL                             /00012101/ [Concomitant]
     Dosage: 60 MG, UNKNOWN
     Route: 048
     Dates: start: 20000901
  3. MUCOSOLVAN [Concomitant]
     Dosage: 3 DF, UNKNOWN
     Route: 042
     Dates: start: 20000908
  4. FUROSEMID                          /00032601/ [Concomitant]
     Dosage: 40 MG, UNKNOWN
     Route: 042
     Dates: start: 20000908
  5. CLAFORAN                           /00497602/ [Concomitant]
     Dosage: 4 MG, UNKNOWN
     Route: 042
     Dates: start: 20000908
  6. MONO EMBOLEX [Concomitant]
     Dosage: 1 DF, UNKNOWN
     Route: 058
     Dates: start: 20000908
  7. MADOPAR [Concomitant]
     Dosage: 187.5 MG, UNKNOWN
     Route: 048
  8. ASS [Concomitant]
     Dosage: 100 MG, UNKNOWN
     Route: 048
  9. DIGIMERCK [Concomitant]
     Dosage: 0.07 MG, UNKNOWN
     Route: 048
  10. CYNT                               /00985301/ [Concomitant]
     Dosage: 0.3 MG, UNKNOWN
     Route: 048
  11. ALLOPURINOL [Concomitant]
     Dosage: 300 MG, UNKNOWN
     Route: 048
  12. COR TENSOBON [Concomitant]
     Dosage: 37.5 MG, UNKNOWN
     Route: 048

REACTIONS (3)
  - Pneumonia [Fatal]
  - Pleural effusion [Unknown]
  - Crepitations [Unknown]
